FAERS Safety Report 18090088 (Version 1)
Quarter: 2020Q3

REPORT INFORMATION
  Report Type: Spontaneous
  Country: FR (occurrence: FR)
  Receive Date: 20200730
  Receipt Date: 20200730
  Transmission Date: 20201103
  Serious: Yes (Death)
  Sender: FDA-Public Use
  Company Number: FR-TEVA-2020-FR-1806774

PATIENT
  Age: 75 Year
  Sex: Male
  Weight: 75 kg

DRUGS (6)
  1. IRBESARTAN. [Suspect]
     Active Substance: IRBESARTAN
     Route: 048
  2. METOPROLOL (FUMARATE DE) [Concomitant]
     Active Substance: METOPROLOL
     Route: 048
  3. PRAVASTATINE SODIQUE [Concomitant]
     Active Substance: PRAVASTATIN SODIUM
     Route: 048
  4. IMBRUVICA [Suspect]
     Active Substance: IBRUTINIB
     Indication: LYMPHOCYTIC LYMPHOMA
     Route: 048
     Dates: start: 20190222, end: 20200102
  5. LASILIX FAIBLE 20 MG, COMPRIME [Concomitant]
     Active Substance: FUROSEMIDE
     Route: 048
  6. ASPIRINE [Concomitant]
     Active Substance: ASPIRIN
     Route: 048

REACTIONS (3)
  - Atrial fibrillation [Fatal]
  - Cerebrovascular accident [Fatal]
  - Peripheral artery thrombosis [Fatal]

NARRATIVE: CASE EVENT DATE: 20190502
